FAERS Safety Report 22958612 (Version 4)
Quarter: 2023Q4

REPORT INFORMATION
  Report Type: Spontaneous
  Country: US (occurrence: US)
  Receive Date: 20230919
  Receipt Date: 20231005
  Transmission Date: 20240110
  Serious: Yes (Other)
  Sender: FDA-Public Use
  Company Number: US-BIOMARINAP-US-2023-152760

PATIENT

DRUGS (3)
  1. PALYNZIQ [Suspect]
     Active Substance: PEGVALIASE-PQPZ
     Indication: Phenylketonuria
     Dosage: 2.5 MILLIGRAM, QW
     Route: 058
     Dates: start: 20230905
  2. ZYRTEC [Concomitant]
     Active Substance: CETIRIZINE HYDROCHLORIDE
     Indication: Premedication
     Dosage: 10 MILLIGRAM
     Dates: start: 20230915
  3. FAMOTIDINE [Concomitant]
     Active Substance: FAMOTIDINE
     Indication: Premedication

REACTIONS (13)
  - Cellulitis [Recovering/Resolving]
  - Influenza like illness [Recovering/Resolving]
  - Injection site reaction [Recovering/Resolving]
  - Pyrexia [Recovered/Resolved]
  - Skin tightness [Recovering/Resolving]
  - Gait disturbance [Unknown]
  - Injection site erythema [Recovered/Resolved]
  - Injection site bruising [Recovered/Resolved]
  - Injection site swelling [Recovered/Resolved]
  - Injection site irritation [Recovering/Resolving]
  - Injection site warmth [Recovering/Resolving]
  - Injection site pain [Recovering/Resolving]
  - Injection site bruising [Not Recovered/Not Resolved]

NARRATIVE: CASE EVENT DATE: 20230914
